FAERS Safety Report 6665977-2 (Version None)
Quarter: 2010Q1

REPORT INFORMATION
  Report Type: 
  Country: None (occurrence: None)
  Receive Date: 20100330
  Receipt Date: 20100315
  Transmission Date: 20100710
  Serious: Yes (Death, Other)
  Sender: FDA-Public Use
  Company Number: 2010033873

PATIENT
  Age: 68 Year
  Sex: Female

DRUGS (4)
  1. FRAGMIN [Suspect]
     Dosage: 12500 IU, 2X/DAY, SUBCUTANEOUS ; 7500 IU, 1X/DAY
     Route: 059
     Dates: start: 20090501, end: 20090701
  2. FRAGMIN [Suspect]
     Dosage: 12500 IU, 2X/DAY, SUBCUTANEOUS ; 7500 IU, 1X/DAY
     Route: 059
     Dates: start: 20090701, end: 20100101
  3. CASODEX [Concomitant]
  4. GLEEVEC (IMATINIB MALEATE) [Concomitant]

REACTIONS (3)
  - CEREBROVASCULAR ACCIDENT [None]
  - INCORRECT DOSE ADMINISTERED [None]
  - VERTIGO [None]
